FAERS Safety Report 9406561 (Version 1)
Quarter: 2013Q3

REPORT INFORMATION
  Report Type: Spontaneous
  Country: US (occurrence: US)
  Receive Date: 20130718
  Receipt Date: 20130718
  Transmission Date: 20140515
  Serious: No
  Sender: FDA-Public Use
  Company Number: US-009507513-1307USA004102

PATIENT
  Sex: Female
  Weight: 78.46 kg

DRUGS (11)
  1. PEG-INTRON [Suspect]
     Indication: HEPATITIS C
     Dosage: 96 MICROGRAM, QW
     Route: 058
  2. VICTRELIS [Suspect]
     Indication: HEPATITIS C
     Dosage: 800 MG, TID
     Route: 048
  3. RIBAPAK [Suspect]
     Dosage: 1200/DAY
  4. TRAMADOL HYDROCHLORIDE [Concomitant]
  5. ONDANSETRON [Concomitant]
  6. VITAMIN E [Concomitant]
  7. KEFLEX [Concomitant]
  8. ZANTAC [Concomitant]
  9. PROAIR HFA [Concomitant]
  10. NEUPOGEN [Concomitant]
  11. ERGOCALCIFEROL [Concomitant]

REACTIONS (4)
  - White blood cell count decreased [Unknown]
  - Fatigue [Unknown]
  - Nausea [Unknown]
  - Alopecia [Unknown]
